FAERS Safety Report 8947689 (Version 1)
Quarter: 2012Q4

REPORT INFORMATION
  Report Type: 
  Country: US (occurrence: US)
  Receive Date: 20121204
  Receipt Date: 20121204
  Transmission Date: 20130627
  Serious: No
  Sender: FDA-Public Use
  Company Number: US-009507513-1212USA001180

PATIENT
  Age: 8 Year
  Sex: Male
  Weight: 30.39 kg

DRUGS (3)
  1. CLARITIN ORAL SOLUTION [Suspect]
     Indication: HYPERSENSITIVITY
     Dosage: 10 mg, qd
     Route: 048
     Dates: start: 20121027
  2. CLARITIN ORAL SOLUTION [Suspect]
     Dosage: 10 mg, Once
     Route: 048
     Dates: start: 20121028
  3. CLARITIN ORAL SOLUTION [Suspect]
     Dosage: 10 mg, Once
     Route: 048
     Dates: start: 20121028

REACTIONS (1)
  - Overdose [Recovering/Resolving]
